FAERS Safety Report 10726197 (Version 1)
Quarter: 2015Q1

REPORT INFORMATION
  Report Type: Spontaneous
  Country: CA (occurrence: None)
  Receive Date: 20150116
  Receipt Date: 20150116
  Transmission Date: 20150721
  Serious: Yes (Disabling)
  Sender: FDA-Public Use
  Company Number: 2015-0071-SPO

PATIENT
  Age: 51 Year
  Sex: Female

DRUGS (2)
  1. ESTROGEL [Suspect]
     Active Substance: ESTRADIOL
     Indication: MENOPAUSAL SYMPTOMS
     Dates: start: 201107, end: 20141111
  2. PROMETRIUM [Suspect]
     Active Substance: PROGESTERONE
     Indication: MENOPAUSAL SYMPTOMS
     Dates: start: 201107, end: 20141111

REACTIONS (12)
  - Muscle contractions involuntary [None]
  - Economic problem [None]
  - Dyskinesia [None]
  - Paraesthesia [None]
  - Hypoaesthesia [None]
  - Pain in extremity [None]
  - Muscle twitching [None]
  - Neuritis [None]
  - Back pain [None]
  - Gait disturbance [None]
  - Sciatica [None]
  - Job dissatisfaction [None]

NARRATIVE: CASE EVENT DATE: 201107
